FAERS Safety Report 8921512 (Version 2)
Quarter: 2013Q2

REPORT INFORMATION
  Report Type: Spontaneous
  Country: CH (occurrence: CH)
  Receive Date: 20121121
  Receipt Date: 20130613
  Transmission Date: 20140414
  Serious: Yes (Other)
  Sender: FDA-Public Use
  Company Number: CH-ABBOTT-12P-151-1009102-00

PATIENT
  Age: 69 Year
  Sex: Female

DRUGS (5)
  1. NORVIR [Suspect]
     Indication: HIV INFECTION
     Route: 048
     Dates: start: 2010
  2. TRUVADA [Suspect]
     Indication: HIV INFECTION
     Route: 048
     Dates: start: 2010
  3. ROSA CANINA [Concomitant]
     Indication: PAIN
     Route: 048
     Dates: start: 20101101, end: 20111101
  4. URTICA DIOICA [Concomitant]
     Indication: PAIN
     Route: 048
     Dates: start: 20101101, end: 20111101
  5. HARPAGOPHYTUM PROCUMBENS [Concomitant]
     Indication: PRODUCT USED FOR UNKNOWN INDICATION
     Route: 050

REACTIONS (3)
  - Pituitary tumour benign [Unknown]
  - Muscular weakness [Recovering/Resolving]
  - Cushingoid [Recovering/Resolving]
